FAERS Safety Report 5103889-6 (Version None)
Quarter: 2006Q3

REPORT INFORMATION
  Report Type: 
  Country: None (occurrence: None)
  Receive Date: 20060913
  Receipt Date: 20060824
  Transmission Date: 20061208
  Serious: Yes (Disabling)
  Sender: FDA-Public Use
  Company Number: DE-GLAXOSMITHKLINE-D0050693A

PATIENT
  Age: 81 Year
  Sex: Male
  Weight: 54.3 kg

DRUGS (1)
  1. FLUTIDE [Suspect]
     Indication: CHRONIC OBSTRUCTIVE PULMONARY DISEASE
     Dosage: 1PUFF IN THE MORNING
     Route: 055
     Dates: start: 20030101, end: 20060823

REACTIONS (2)
  - HEPATIC STEATOSIS [None]
  - HEPATITIS CHOLESTATIC [None]
